FAERS Safety Report 10663083 (Version 2)
Quarter: 2015Q1

REPORT INFORMATION
  Report Type: Spontaneous
  Country: US (occurrence: US)
  Receive Date: 20141218
  Receipt Date: 20150112
  Transmission Date: 20150720
  Serious: No
  Sender: FDA-Public Use
  Company Number: US-GLAXOSMITHKLINE-A1089609A

PATIENT

DRUGS (2)
  1. MEKINIST [Suspect]
     Active Substance: TRAMETINIB DIMETHYL SULFOXIDE
     Indication: CHEMOTHERAPY
     Route: 048
  2. TAFINLAR [Suspect]
     Active Substance: DABRAFENIB MESYLATE
     Indication: CHEMOTHERAPY
     Dosage: 75MG CAPSULES AT 2 CAPSULES Q 12 HOURS
     Route: 048

REACTIONS (3)
  - Joint swelling [Unknown]
  - Arthralgia [Unknown]
  - Headache [Unknown]
